FAERS Safety Report 14541683 (Version 2)
Quarter: 2019Q3

REPORT INFORMATION
  Report Type: Spontaneous
  Country: US (occurrence: US)
  Receive Date: 20180216
  Receipt Date: 20190927
  Transmission Date: 20191004
  Serious: No
  Sender: FDA-Public Use
  Company Number: US-JNJFOC-20180206349

PATIENT
  Sex: Male

DRUGS (1)
  1. RISPERDAL [Suspect]
     Active Substance: RISPERIDONE
     Indication: AGGRESSION
     Dosage: VARYING DOSES OF 0.5 MG, 1 MG, 2 MG AND 3 MG
     Route: 048
     Dates: start: 20010914, end: 20060203

REACTIONS (2)
  - Gynaecomastia [Unknown]
  - Emotional distress [Unknown]
